FAERS Safety Report 6089345-X (Version None)
Quarter: 2009Q1

REPORT INFORMATION
  Report Type: 
  Country: None (occurrence: None)
  Receive Date: 20090224
  Receipt Date: 20090216
  Transmission Date: 20090719
  Serious: Yes (Other)
  Sender: FDA-Public Use
  Company Number: PHEH2007US04455

PATIENT
  Sex: Female
  Weight: 86.621 kg

DRUGS (13)
  1. ZOMETA [Suspect]
     Indication: BREAST CANCER
  2. ANTIBIOTICS [Suspect]
  3. SYNTHROID [Concomitant]
     Dosage: 100 MCG
  4. CELEBREX [Concomitant]
     Dosage: 200 MG, UNK
  5. NEXIUM [Concomitant]
     Dosage: 40 MG, UNK
  6. ASPIRIN [Concomitant]
     Dosage: 81 MG, UNK
  7. EFFEXOR XR [Concomitant]
     Dosage: 75 MG, UNK
  8. ATENOLOL [Concomitant]
     Dosage: 50 MG, UNK
  9. LIPITOR [Concomitant]
     Dosage: 20 MG, UNK
  10. AMITRIPTYLINE [Concomitant]
     Dosage: 25 MG, UNK
  11. TYLENOL (CAPLET) [Concomitant]
  12. VICODIN [Concomitant]
     Dosage: UNK, PRN
  13. PERCOCET [Concomitant]
     Dosage: 5/325 MG, PRN

REACTIONS (24)
  - ANAEMIA [None]
  - ANXIETY [None]
  - ARTHRALGIA [None]
  - BONE DEBRIDEMENT [None]
  - BONE DISORDER [None]
  - COLITIS [None]
  - DEFORMITY [None]
  - EMOTIONAL DISTRESS [None]
  - GENERAL PHYSICAL HEALTH DETERIORATION [None]
  - HYPOPHAGIA [None]
  - INFECTION [None]
  - JAW DISORDER [None]
  - ORAL PAIN [None]
  - OSTEOMYELITIS [None]
  - OSTEONECROSIS [None]
  - OSTEOPOROSIS [None]
  - PAIN [None]
  - PARAESTHESIA ORAL [None]
  - PYREXIA [None]
  - SPINAL FRACTURE [None]
  - SPINAL OSTEOARTHRITIS [None]
  - SWELLING FACE [None]
  - TOOTH EXTRACTION [None]
  - TOOTH FRACTURE [None]
